FAERS Safety Report 19051244 (Version 1)
Quarter: 2021Q1

REPORT INFORMATION
  Report Type: Spontaneous
  Country: US (occurrence: US)
  Receive Date: 20210324
  Receipt Date: 20210324
  Transmission Date: 20210420
  Serious: Yes (Hospitalization)
  Sender: FDA-Public Use
  Company Number: None

PATIENT
  Age: 69 Year
  Sex: Male
  Weight: 111.1 kg

DRUGS (6)
  1. LORAZEPAM. [Suspect]
     Active Substance: LORAZEPAM
  2. AMANTADINE. [Suspect]
     Active Substance: AMANTADINE HYDROCHLORIDE
  3. DEXAMETHASONE 80MG [Suspect]
     Active Substance: DEXAMETHASONE
     Dates: end: 20201023
  4. OXYBUTININ [Suspect]
     Active Substance: OXYBUTYNIN
  5. LENALIDOMIDE (CC?5013) 210MG [Suspect]
     Active Substance: LENALIDOMIDE
     Dates: end: 20201105
  6. DARATUMUMAB 1920MG [Suspect]
     Active Substance: DARATUMUMAB
     Dates: end: 20201023

REACTIONS (4)
  - Fall [None]
  - Hypotension [None]
  - Mental status changes [None]
  - Seizure [None]

NARRATIVE: CASE EVENT DATE: 20201116
